FAERS Safety Report 9713473 (Version 4)
Quarter: 2014Q1

REPORT INFORMATION
  Report Type: Spontaneous
  Country: JP (occurrence: JP)
  Receive Date: 20131126
  Receipt Date: 20140124
  Transmission Date: 20141002
  Serious: Yes (Life-Threatening)
  Sender: FDA-Public Use
  Company Number: JP-B.I. PHARMACEUTICALS,INC./RIDGEFIELD-2013-BI-39169NB

PATIENT
  Age: 59 Year
  Sex: Female
  Weight: 47 kg

DRUGS (5)
  1. TRAZENTA [Suspect]
     Indication: TYPE 2 DIABETES MELLITUS
     Dosage: 5 MG
     Route: 048
     Dates: start: 20131023, end: 20131114
  2. NOVORAPID / INSULIN ASPART(GENETICAL RECOMBINATION) [Concomitant]
     Indication: TYPE 2 DIABETES MELLITUS
     Dosage: 8 U
     Route: 065
     Dates: start: 20130930, end: 20131114
  3. LEVEMIR / INSULIN DETEMIR(GENETICAL RECOMBINATION) [Concomitant]
     Indication: TYPE 2 DIABETES MELLITUS
     Dosage: 4 U
     Route: 065
     Dates: start: 20131011, end: 20131113
  4. NEXIUM / ESOMEPRAZOLE MAGNESIUM HYDRATE [Concomitant]
     Indication: GASTRITIS
     Dosage: 10 MG
     Route: 065
     Dates: start: 20130925, end: 20131114
  5. BIOFERMIN / LACTOMIN [Concomitant]
     Indication: DIARRHOEA
     Dosage: 3 ANZ
     Route: 065
     Dates: start: 20130914, end: 20131114

REACTIONS (3)
  - Portal venous gas [Recovered/Resolved]
  - Pneumatosis intestinalis [Not Recovered/Not Resolved]
  - Supraventricular tachycardia [Not Recovered/Not Resolved]
